FAERS Safety Report 11491471 (Version 1)
Quarter: 2015Q3

REPORT INFORMATION
  Report Type: Spontaneous
  Country: JP (occurrence: JP)
  Receive Date: 20150910
  Receipt Date: 20150910
  Transmission Date: 20151125
  Serious: Yes (Other)
  Sender: FDA-Public Use
  Company Number: JP-MALLINCKRODT-T201504274

PATIENT
  Age: 43 Year
  Sex: Female
  Weight: 50 kg

DRUGS (13)
  1. RINDERON V [Concomitant]
     Active Substance: BETAMETHASONE VALERATE
     Indication: ANALGESIC THERAPY
     Dosage: 2 MG
     Route: 048
  2. LYRICA [Concomitant]
     Active Substance: PREGABALIN
     Indication: ANALGESIC THERAPY
     Dosage: 150 MG
     Route: 048
  3. OXINORM [Concomitant]
     Active Substance: OXYCODONE HYDROCHLORIDE
     Indication: ANALGESIC THERAPY
     Dosage: 20-40 MG, PRN
     Route: 048
     Dates: start: 20150204
  4. SODIUM RABEPRAZOLE [Concomitant]
     Active Substance: RABEPRAZOLE SODIUM
     Dosage: 10 MG
     Route: 048
  5. NAIXAN [Concomitant]
     Active Substance: NAPROXEN SODIUM
     Indication: ANALGESIC THERAPY
     Dosage: 300 MG
     Route: 048
  6. METHADONE [Suspect]
     Active Substance: METHADONE HYDROCHLORIDE
     Dosage: 35 MG DAILY DOSE
     Route: 048
     Dates: start: 20150219
  7. CALCIUM LACTATE HYDRATE [Concomitant]
     Active Substance: CALCIUM LACTATE
     Dosage: 3 G
     Route: 048
  8. CRAVIT [Concomitant]
     Active Substance: LEVOFLOXACIN
     Dosage: 250 MG
     Route: 048
     Dates: end: 20150206
  9. SENNOSIDE [Concomitant]
     Active Substance: SENNOSIDES
     Dosage: 12 MG
     Route: 048
  10. ALFAROL [Concomitant]
     Active Substance: ALFACALCIDOL
     Dosage: 0.5 ?G
     Route: 048
  11. MAGMITT [Concomitant]
     Active Substance: MAGNESIUM OXIDE
     Dosage: 330 MG
     Route: 048
  12. OXYCODONE [Concomitant]
     Active Substance: OXYCODONE
     Indication: ANALGESIC THERAPY
     Dosage: 180 MG
     Route: 048
  13. METHADONE [Suspect]
     Active Substance: METHADONE HYDROCHLORIDE
     Indication: CANCER PAIN
     Dosage: 10 MG (30 MG DAILY DOSE)
     Route: 048
     Dates: start: 20150205, end: 20150218

REACTIONS (2)
  - Renal impairment [Recovering/Resolving]
  - Insomnia [Recovering/Resolving]

NARRATIVE: CASE EVENT DATE: 20150206
